FAERS Safety Report 4995544-8 (Version None)
Quarter: 2006Q2

REPORT INFORMATION
  Report Type: 
  Country: None (occurrence: None)
  Receive Date: 20060508
  Receipt Date: 20060502
  Transmission Date: 20061013
  Serious: Yes (Hospitalization)
  Sender: FDA-Public Use
  Company Number: FR-ROCHE-446496

PATIENT
  Age: 59 Year
  Sex: Male
  Weight: 80 kg

DRUGS (4)
  1. ROCEPHIN [Suspect]
     Route: 042
     Dates: start: 20060224, end: 20060228
  2. VANCOMYCIN [Suspect]
     Route: 042
     Dates: start: 20060224, end: 20060228
  3. AMOXICILLIN [Suspect]
     Route: 042
     Dates: start: 20060224, end: 20060228
  4. GENTAMICIN [Suspect]
     Route: 042
     Dates: start: 20060224, end: 20060228

REACTIONS (1)
  - ERYTHEMA [None]
